FAERS Safety Report 4807502-4 (Version None)
Quarter: 2005Q4

REPORT INFORMATION
  Report Type: 
  Country: None (occurrence: None)
  Receive Date: 20051024
  Receipt Date: 20051014
  Transmission Date: 20060501
  Serious: Yes (Other)
  Sender: FDA-Public Use
  Company Number: PHEH2005US11487

PATIENT
  Age: 53 Year
  Sex: Female

DRUGS (2)
  1. PROTONIX [Concomitant]
  2. LOTREL [Suspect]
     Indication: HYPERTENSION
     Dosage: 5/10MG, QD
     Route: 048
     Dates: start: 20041001

REACTIONS (8)
  - ABDOMINAL DISTENSION [None]
  - BACK PAIN [None]
  - BIOPSY UTERUS [None]
  - GALLBLADDER OPERATION [None]
  - MENSTRUATION IRREGULAR [None]
  - PELVIC DISCOMFORT [None]
  - RENAL DISORDER [None]
  - UTERINE DISORDER [None]
